FAERS Safety Report 6165611-4 (Version None)
Quarter: 2009Q2

REPORT INFORMATION
  Report Type: 
  Country: None (occurrence: None)
  Receive Date: 20090423
  Receipt Date: 20090422
  Transmission Date: 20091009
  Serious: Yes (Hospitalization, Disabling)
  Sender: FDA-Public Use
  Company Number: US-B.I. PHARMACEUTICALS,INC./RIDGEFIELD-2009-BP-02947BP

PATIENT
  Age: 66 Year
  Sex: Male
  Weight: 77.11 kg

DRUGS (4)
  1. AGGRENOX [Suspect]
     Indication: PROPHYLAXIS
     Dosage: 50MG/400MG
     Dates: start: 20050101, end: 20090226
  2. TENECTEPLASE [Suspect]
     Indication: CEREBROVASCULAR ACCIDENT
  3. LIPITOR [Concomitant]
     Dosage: 10MG
  4. VERAPAMIL EXTENDED-RELEASE [Concomitant]
     Dosage: 120MG

REACTIONS (3)
  - APHASIA [None]
  - CEREBROVASCULAR ACCIDENT [None]
  - HAEMORRHAGE INTRACRANIAL [None]
